FAERS Safety Report 8293895-5 (Version None)
Quarter: 2012Q2

REPORT INFORMATION
  Report Type: 
  Country: None (occurrence: None)
  Receive Date: 20120418
  Receipt Date: 20120412
  Transmission Date: 20120825
  Serious: No
  Sender: FDA-Public Use
  Company Number: US-PFIZER INC-2012092121

PATIENT
  Sex: Female
  Weight: 83 kg

DRUGS (7)
  1. LYRICA [Suspect]
     Indication: POLYNEUROPATHY
     Dosage: 50 MG, 2X/DAY
     Dates: start: 20120101
  2. CARDURA [Suspect]
     Indication: BLOOD PRESSURE ABNORMAL
     Dosage: 8 MG, DAILY
     Dates: start: 20120101
  3. NEURONTIN [Suspect]
     Indication: NEUROPATHY PERIPHERAL
     Dosage: 300 MG, 3X/DAY
  4. NORVASC [Suspect]
     Indication: BLOOD PRESSURE ABNORMAL
     Dosage: 10 MG, DAILY
  5. LIPITOR [Suspect]
     Indication: BLOOD CHOLESTEROL ABNORMAL
     Dosage: 20 MG, DAILY
  6. LANTUS [Concomitant]
     Indication: DIABETES MELLITUS
     Dosage: 50 IU, 2X/DAY
  7. NEURONTIN [Suspect]
     Indication: DIABETIC NEUROPATHY

REACTIONS (3)
  - SINUSITIS [None]
  - PARAESTHESIA [None]
  - SWELLING [None]
